FAERS Safety Report 9751832 (Version 1)
Quarter: 2013Q4

REPORT INFORMATION
  Report Type: Spontaneous
  Country: TW (occurrence: TW)
  Receive Date: 20131213
  Receipt Date: 20131213
  Transmission Date: 20140711
  Serious: Yes (Hospitalization, Other)
  Sender: FDA-Public Use
  Company Number: TW-AMGEN-TWNSP2013087452

PATIENT
  Age: 70 Year
  Sex: Female

DRUGS (4)
  1. ENBREL [Suspect]
     Indication: RHEUMATOID ARTHRITIS
     Dosage: 25 MG, BIW
     Route: 058
     Dates: start: 20061026
  2. QUININE [Concomitant]
     Indication: RHEUMATOID ARTHRITIS
     Dosage: 1 DF, BID
  3. SULFASALAZINE [Concomitant]
     Indication: RHEUMATOID ARTHRITIS
     Dosage: 2 DF, BID
  4. STROCAIN                           /00130301/ [Concomitant]
     Indication: RHEUMATOID ARTHRITIS
     Dosage: 1 DF, QD

REACTIONS (2)
  - Pyrexia [Unknown]
  - Abscess [Not Recovered/Not Resolved]
